FAERS Safety Report 5883897-8 (Version None)
Quarter: 2008Q3

REPORT INFORMATION
  Report Type: 
  Country: None (occurrence: None)
  Receive Date: 20080915
  Receipt Date: 20080901
  Transmission Date: 20090109
  Serious: Yes (Death)
  Sender: FDA-Public Use
  Company Number: FR-ELI_LILLY_AND_COMPANY-FR200808000122

PATIENT
  Age: 73 Year
  Sex: Female

DRUGS (3)
  1. FORTEO [Suspect]
     Indication: OSTEOPOROSIS
     Dosage: 20 UG, DAILY (1/D)
     Route: 058
     Dates: start: 20070924
  2. IMUREL [Concomitant]
     Dosage: UNK, UNKNOWN
     Route: 065
     Dates: start: 20080312
  3. CORTISONE [Concomitant]
     Dosage: UNK, UNKNOWN
     Route: 065
     Dates: start: 20080312

REACTIONS (3)
  - CARDIAC ARREST [None]
  - FALL [None]
  - INTERSTITIAL LUNG DISEASE [None]
